FAERS Safety Report 13435763 (Version 2)
Quarter: 2018Q1

REPORT INFORMATION
  Report Type: Spontaneous
  Country: AU (occurrence: AU)
  Receive Date: 20170413
  Receipt Date: 20180220
  Transmission Date: 20180508
  Serious: Yes (Other)
  Sender: FDA-Public Use
  Company Number: AU-DSJP-DSU-2017-111607

PATIENT

DRUGS (1)
  1. OLMETEC 20 MG [Suspect]
     Active Substance: OLMESARTAN MEDOXOMIL
     Indication: PRODUCT USED FOR UNKNOWN INDICATION
     Dosage: 20 MG, UNK
     Route: 065
     Dates: start: 20170408

REACTIONS (5)
  - Hypotension [Unknown]
  - Syncope [Unknown]
  - Dizziness [Unknown]
  - Hypertension [Unknown]
  - Sluggishness [Unknown]

NARRATIVE: CASE EVENT DATE: 201704
